FAERS Safety Report 18740593 (Version 1)
Quarter: 2021Q1

REPORT INFORMATION
  Report Type: Spontaneous
  Country: US (occurrence: US)
  Receive Date: 20210114
  Receipt Date: 20210114
  Transmission Date: 20210419
  Serious: Yes (Hospitalization)
  Sender: FDA-Public Use
  Company Number: None

PATIENT
  Age: 85 Year
  Sex: Female
  Weight: 57.8 kg

DRUGS (6)
  1. PIRFENIDONE. [Suspect]
     Active Substance: PIRFENIDONE
     Indication: IDIOPATHIC PULMONARY FIBROSIS
     Route: 048
     Dates: start: 20201209, end: 20210111
  2. AMLODIPINE 2.5 MG [Concomitant]
     Active Substance: AMLODIPINE BESYLATE
     Dates: start: 20190909
  3. SIMVASTATIN 5 MG [Concomitant]
     Active Substance: SIMVASTATIN
     Dates: start: 20130304
  4. LEVOTHYROXINE 88 MCG [Concomitant]
     Active Substance: LEVOTHYROXINE
     Dates: start: 20131120
  5. ASPIRIN 81 MG [Concomitant]
     Active Substance: ASPIRIN
     Dates: start: 20180504
  6. LOSARTAN 100 MG [Concomitant]
     Active Substance: LOSARTAN
     Dates: start: 20130304

REACTIONS (7)
  - Drug-induced liver injury [None]
  - Diarrhoea [None]
  - Aspartate aminotransferase increased [None]
  - Chromaturia [None]
  - Idiopathic pulmonary fibrosis [None]
  - Decreased appetite [None]
  - Alanine aminotransferase increased [None]

NARRATIVE: CASE EVENT DATE: 20210112
